FAERS Safety Report 22525346 (Version 1)
Quarter: 2023Q2

REPORT INFORMATION
  Report Type: Spontaneous
  Country: US (occurrence: US)
  Receive Date: 20230606
  Receipt Date: 20230606
  Transmission Date: 20230721
  Serious: No
  Sender: FDA-Public Use
  Company Number: US-009507513-2305USA003618

PATIENT
  Age: 25 Year
  Sex: Female

DRUGS (8)
  1. TRUSOPT [Suspect]
     Active Substance: DORZOLAMIDE HYDROCHLORIDE
     Indication: Open angle glaucoma
     Dosage: UNK, BID
     Dates: start: 201802
  2. TRUSOPT [Suspect]
     Active Substance: DORZOLAMIDE HYDROCHLORIDE
     Indication: Developmental glaucoma
  3. TIMOLOL [Concomitant]
     Active Substance: TIMOLOL
     Indication: Open angle glaucoma
     Dosage: UNK, BID
     Dates: start: 201802
  4. TIMOLOL [Concomitant]
     Active Substance: TIMOLOL
     Indication: Developmental glaucoma
  5. BRIMONIDINE [Concomitant]
     Active Substance: BRIMONIDINE TARTRATE
     Indication: Open angle glaucoma
     Dosage: UNK, BID
     Dates: start: 201802
  6. BRIMONIDINE [Concomitant]
     Active Substance: BRIMONIDINE TARTRATE
     Indication: Developmental glaucoma
  7. BIMATOPROST [Concomitant]
     Active Substance: BIMATOPROST
     Indication: Open angle glaucoma
     Dosage: UNK, HS
     Dates: start: 201802
  8. BIMATOPROST [Concomitant]
     Active Substance: BIMATOPROST
     Indication: Developmental glaucoma

REACTIONS (1)
  - Drug ineffective [Unknown]

NARRATIVE: CASE EVENT DATE: 20180201
